FAERS Safety Report 4429727-2 (Version None)
Quarter: 2004Q3

REPORT INFORMATION
  Report Type: 
  Country: None (occurrence: None)
  Receive Date: 20040820
  Receipt Date: 20040811
  Transmission Date: 20050211
  Serious: Yes (Death)
  Sender: FDA-Public Use
  Company Number: GB-JNJFOC-20040703663

PATIENT
  Sex: Male

DRUGS (5)
  1. REMICADE [Suspect]
     Indication: RHEUMATOID ARTHRITIS
     Route: 042
  2. METHOTREXATE [Concomitant]
  3. FOLIC ACID [Concomitant]
  4. BENDROFLUAZIDE [Concomitant]
  5. VALSARTAN [Concomitant]

REACTIONS (1)
  - METASTASES TO BONE [None]
